FAERS Safety Report 13056733 (Version 1)
Quarter: 2016Q4

REPORT INFORMATION
  Report Type: Spontaneous
  Country: US (occurrence: US)
  Receive Date: 20161222
  Receipt Date: 20161222
  Transmission Date: 20170207
  Serious: No
  Sender: FDA-Public Use
  Company Number: US-BIOMARINAP-US-2016-109227

PATIENT
  Sex: Male

DRUGS (2)
  1. ALDURAZYME [Suspect]
     Active Substance: LARONIDASE
     Dosage: 17.4 MG, QW
     Route: 041
     Dates: start: 20130422
  2. ALDURAZYME [Suspect]
     Active Substance: LARONIDASE
     Indication: MUCOPOLYSACCHARIDOSIS I
     Dosage: 17.4 MG, QW
     Route: 041
     Dates: start: 2006

REACTIONS (3)
  - Respiratory disorder [Unknown]
  - Nasopharyngitis [Unknown]
  - Swelling [Unknown]
